FAERS Safety Report 5665344-4 (Version None)
Quarter: 2008Q1

REPORT INFORMATION
  Report Type: 
  Country: None (occurrence: None)
  Receive Date: 20080314
  Receipt Date: 20071203
  Transmission Date: 20080703
  Serious: No
  Sender: FDA-Public Use
  Company Number: US-ABBOTT-07P-163-0427331-00

PATIENT
  Sex: Female

DRUGS (7)
  1. HUMIRA [Suspect]
     Indication: PSORIATIC ARTHROPATHY
     Route: 058
     Dates: start: 20071116
  2. CELECOXIB [Concomitant]
     Indication: PAIN
     Route: 048
  3. AVANDAMENT [Concomitant]
     Indication: DIABETES MELLITUS
     Route: 048
  4. GLIPIZIDE [Concomitant]
     Indication: DIABETES MELLITUS
     Route: 048
  5. DIOVAN HCT [Concomitant]
     Indication: HYPERTENSION
     Route: 048
  6. CARVEDILOL [Concomitant]
     Indication: HYPERTENSION
     Route: 048
  7. LEVOTHYROXINE SODIUM [Concomitant]
     Indication: HORMONE REPLACEMENT THERAPY
     Route: 048

REACTIONS (3)
  - EXPIRED DRUG ADMINISTERED [None]
  - INJECTION SITE IRRITATION [None]
  - INJECTION SITE PAIN [None]
